FAERS Safety Report 19967303 (Version 1)
Quarter: 2021Q4

REPORT INFORMATION
  Report Type: Other
  Country: NL (occurrence: NL)
  Receive Date: 20211019
  Receipt Date: 20211019
  Transmission Date: 20220303
  Serious: Yes (Hospitalization, Other)
  Sender: FDA-Public Use
  Company Number: NL-CELGENE-NLD-20210900621

PATIENT

DRUGS (17)
  1. DEXAMETHASONE [Suspect]
     Active Substance: DEXAMETHASONE
     Indication: Plasma cell myeloma
     Dosage: 40 MG
     Route: 048
     Dates: start: 20210809, end: 20210829
  2. ISATUXIMAB [Suspect]
     Active Substance: ISATUXIMAB
     Indication: Product used for unknown indication
     Dosage: UNK
     Route: 042
     Dates: start: 20210831
  3. ISATUXIMAB [Suspect]
     Active Substance: ISATUXIMAB
     Indication: Plasma cell myeloma
     Dosage: 888 MG
     Route: 042
     Dates: start: 20210809, end: 20210824
  4. CARFILZOMIB [Suspect]
     Active Substance: CARFILZOMIB
     Indication: Product used for unknown indication
     Dosage: UNK
     Route: 042
     Dates: start: 20210831
  5. CARFILZOMIB [Suspect]
     Active Substance: CARFILZOMIB
     Indication: Plasma cell myeloma
     Dosage: 120 MG
     Route: 042
     Dates: start: 20210809, end: 20210824
  6. REVLIMID [Suspect]
     Active Substance: LENALIDOMIDE
     Indication: Plasma cell myeloma
     Dosage: 25 MG
     Route: 048
     Dates: start: 20210809, end: 20210829
  7. REVLIMID [Suspect]
     Active Substance: LENALIDOMIDE
     Dosage: UNK
     Route: 048
     Dates: start: 20210831
  8. ALLOPURINOL [Concomitant]
     Active Substance: ALLOPURINOL
     Indication: Prophylaxis
     Dosage: UNK
     Route: 065
     Dates: start: 20210805
  9. VALACYCLOVIR HYDROCHLORIDE [Concomitant]
     Active Substance: VALACYCLOVIR HYDROCHLORIDE
     Indication: Prophylaxis
     Dosage: UNK
     Route: 065
     Dates: start: 20210805
  10. METOCLOPRAMIDE [Concomitant]
     Active Substance: METOCLOPRAMIDE
     Indication: Prophylaxis
     Dosage: UNK
     Route: 065
     Dates: start: 20210805
  11. Ascal [Concomitant]
     Indication: Prophylaxis
     Dosage: UNK
     Route: 065
     Dates: start: 20210805
  12. ACETAMINOPHEN [Concomitant]
     Active Substance: ACETAMINOPHEN
     Indication: Prophylaxis
     Dosage: UNK
     Route: 065
     Dates: start: 20210811
  13. CLEMASTINE [Concomitant]
     Active Substance: CLEMASTINE
     Indication: Rash
     Dosage: UNK
     Route: 065
     Dates: start: 20210809, end: 20210809
  14. CLEMASTINE [Concomitant]
     Active Substance: CLEMASTINE
     Indication: Dysphonia
  15. CIPROFLOXACIN [Concomitant]
     Active Substance: CIPROFLOXACIN
     Indication: Prophylaxis
     Dosage: UNK
     Route: 065
     Dates: start: 20210805
  16. FLUCONAZOLE [Concomitant]
     Active Substance: FLUCONAZOLE
     Indication: Prophylaxis
     Dosage: UNK
     Route: 065
     Dates: start: 20210805
  17. NADROPARIN CALCIUM [Concomitant]
     Active Substance: NADROPARIN CALCIUM
     Indication: Pulmonary embolism
     Dosage: UNK
     Route: 065
     Dates: start: 20210830

REACTIONS (1)
  - Pulmonary embolism [Recovered/Resolved]

NARRATIVE: CASE EVENT DATE: 20210829
